FAERS Safety Report 8474266-5 (Version None)
Quarter: 2012Q2

REPORT INFORMATION
  Report Type: 
  Country: None (occurrence: None)
  Receive Date: 20120628
  Receipt Date: 20120621
  Transmission Date: 20120825
  Serious: Yes (Hospitalization)
  Sender: FDA-Public Use
  Company Number: US-AMGEN-USASP2011043009

PATIENT
  Age: 48 Year
  Sex: Male
  Weight: 86.168 kg

DRUGS (6)
  1. SIMVASTATIN [Concomitant]
     Dosage: 20 MG, QD
     Route: 048
  2. METFORMIN HCL [Concomitant]
     Dosage: 500 MG, QD
     Route: 048
  3. ENBREL [Suspect]
     Dosage: 50 MG, 2 TIMES/WK
     Dates: start: 20000101, end: 20101001
  4. GLIMEPIRIDE [Concomitant]
     Dosage: 2 MG, QD
     Route: 048
  5. GEMFIBROZIL EG [Concomitant]
     Dosage: UNK UNK, BID
     Route: 048
  6. ENBREL [Suspect]
     Indication: PSORIASIS
     Dosage: 50 MG, QWK
     Dates: start: 20120207

REACTIONS (3)
  - ROTATOR CUFF SYNDROME [None]
  - PSORIASIS [None]
  - JOINT INJURY [None]
